FAERS Safety Report 20938196 (Version 1)
Quarter: 2022Q2

REPORT INFORMATION
  Report Type: Spontaneous
  Country: US (occurrence: US)
  Receive Date: 20220609
  Receipt Date: 20220609
  Transmission Date: 20220721
  Serious: Yes (Other)
  Sender: FDA-Public Use
  Company Number: US-CURIUM-2022000279

PATIENT
  Age: 68 Year
  Sex: Female

DRUGS (1)
  1. SODIUM IODIDE I-131 [Suspect]
     Active Substance: SODIUM IODIDE I-131
     Indication: Papillary thyroid cancer
     Route: 065

REACTIONS (2)
  - Thyroid cancer recurrent [Not Recovered/Not Resolved]
  - Thyroid cancer metastatic [Not Recovered/Not Resolved]
